FAERS Safety Report 7042429-1 (Version None)
Quarter: 2010Q4

REPORT INFORMATION
  Report Type: 
  Country: None (occurrence: None)
  Receive Date: 20101013
  Receipt Date: 20100806
  Transmission Date: 20110411
  Serious: No
  Sender: FDA-Public Use
  Company Number: US-ASTRAZENECA-2010SE37012

PATIENT
  Age: 63 Year
  Sex: Female
  Weight: 90.7 kg

DRUGS (5)
  1. SYMBICORT [Suspect]
     Indication: ASTHMA
     Dosage: 320 MCG
     Route: 055
     Dates: start: 20070601, end: 20100601
  2. SINGULAIR [Concomitant]
  3. ALBUTEROL [Concomitant]
     Indication: ASTHMA
     Dosage: AS REQUIRED
     Route: 055
  4. TYLENOL [Concomitant]
     Indication: PAIN
     Dosage: AS REQUIRED
     Route: 048
  5. IBUPROFEN [Concomitant]
     Indication: PAIN
     Dosage: AS REQUIRED
     Route: 048

REACTIONS (4)
  - COUGH [None]
  - DRUG DOSE OMISSION [None]
  - DYSPNOEA [None]
  - WHEEZING [None]
